FAERS Safety Report 17167212 (Version 1)
Quarter: 2019Q4

REPORT INFORMATION
  Report Type: Spontaneous
  Country: US (occurrence: US)
  Receive Date: 20191217
  Receipt Date: 20191217
  Transmission Date: 20200122
  Serious: No
  Sender: FDA-Public Use
  Company Number: None

PATIENT
  Age: 76 Year
  Sex: Male
  Weight: 118.8 kg

DRUGS (3)
  1. LEVOPHED [Concomitant]
     Active Substance: NOREPINEPHRINE BITARTRATE
     Dates: start: 20191203, end: 20191206
  2. BD CAREFUSION [Suspect]
     Active Substance: DEVICE
  3. EPINEPHERINE [Concomitant]
     Active Substance: EPINEPHRINE
     Dates: start: 20191203, end: 20191206

REACTIONS (2)
  - Device malfunction [None]
  - Hypotension [None]

NARRATIVE: CASE EVENT DATE: 20191203
